FAERS Safety Report 9531145 (Version 1)
Quarter: 2013Q2

REPORT INFORMATION
  Report Type: Spontaneous
  Country: US (occurrence: None)
  Receive Date: 20130418
  Receipt Date: 20130418
  Transmission Date: 20140414
  Serious: No
  Sender: FDA-Public Use
  Company Number: 2012PROUSA02358

PATIENT
  Age: 66 Year
  Sex: Male
  Weight: 99.8 kg

DRUGS (3)
  1. PROVENGE [Suspect]
     Indication: PROSTATE CANCER METASTATIC
     Dosage: 250 ML, SINGLE, INTRAVENOUS
     Route: 042
     Dates: start: 20121108, end: 20011108
  2. ASPIRIN ( ACETYLSALICYLIC ACID) [Concomitant]
  3. NAPROXEN SODIUM ( NAPROXEN SODIUM) [Concomitant]

REACTIONS (1)
  - Disease progression [None]
